FAERS Safety Report 8114189-4 (Version None)
Quarter: 2012Q1

REPORT INFORMATION
  Report Type: 
  Country: None (occurrence: None)
  Receive Date: 20120205
  Receipt Date: 20111005
  Transmission Date: 20120608
  Serious: No
  Sender: FDA-Public Use
  Company Number: US-ALLERGAN-1113180US

PATIENT
  Age: 52 Year
  Sex: Female

DRUGS (2)
  1. PRED FORTE [Suspect]
     Indication: EYE PRURITUS
     Route: 047
  2. PRED FORTE [Suspect]
     Indication: OCULAR HYPERAEMIA

REACTIONS (1)
  - DRUG INEFFECTIVE [None]
